FAERS Safety Report 5921624-6 (Version None)
Quarter: 2008Q4

REPORT INFORMATION
  Report Type: 
  Country: None (occurrence: None)
  Receive Date: 20081016
  Receipt Date: 20081016
  Transmission Date: 20090506
  Serious: No
  Sender: FDA-Public Use
  Company Number: None

PATIENT
  Age: 82 Year
  Sex: Female
  Weight: 57.1532 kg

DRUGS (3)
  1. MIDAZOLAM HCL [Suspect]
     Indication: GASTROSTOMY TUBE INSERTION
     Dosage: 5MG ONE TIME IV
     Route: 042
     Dates: start: 20080810
  2. MIDAZOLAM HCL [Suspect]
     Indication: SEDATION
     Dosage: 5MG ONE TIME IV
     Route: 042
     Dates: start: 20080810
  3. TPN [Concomitant]

REACTIONS (4)
  - CYANOSIS [None]
  - FACE OEDEMA [None]
  - HYPERHIDROSIS [None]
  - SWELLING [None]
